FAERS Safety Report 5737249-1 (Version None)
Quarter: 2008Q2

REPORT INFORMATION
  Report Type: 
  Country: None (occurrence: None)
  Receive Date: 20080514
  Receipt Date: 20080428
  Transmission Date: 20081010
  Serious: Yes (Other)
  Sender: FDA-Public Use
  Company Number: PHBS2008BR02380

PATIENT
  Age: 69 Year
  Sex: Female
  Weight: 65 kg

DRUGS (5)
  1. GLEEVEC [Suspect]
     Indication: CHRONIC MYELOID LEUKAEMIA
     Dosage: 400 MG/DAY
     Route: 048
  2. GLEEVEC [Suspect]
     Dosage: 600 MG/DAY
     Route: 048
  3. GLEEVEC [Suspect]
     Dosage: 3+3 TABLETS/DAY
     Route: 048
  4. AAS [Concomitant]
     Indication: ANTIPLATELET THERAPY
     Route: 048
  5. HYDREA [Concomitant]
     Indication: ANTIPLATELET THERAPY
     Route: 048

REACTIONS (23)
  - ANAEMIA [None]
  - ANISOCYTOSIS [None]
  - APHTHOUS STOMATITIS [None]
  - ASTHENIA [None]
  - CHOLELITHIASIS [None]
  - DIZZINESS [None]
  - EYE SWELLING [None]
  - FATIGUE [None]
  - HAEMATOCRIT DECREASED [None]
  - HAEMOGLOBIN DECREASED [None]
  - HYPOCHROMASIA [None]
  - JOINT SWELLING [None]
  - LEUKOCYTOSIS [None]
  - MICROCYTOSIS [None]
  - MUSCLE SPASMS [None]
  - NEUTROPHIL COUNT INCREASED [None]
  - PLATELET COUNT INCREASED [None]
  - POIKILOCYTOSIS [None]
  - POLYCHROMASIA [None]
  - TRANSFUSION [None]
  - VOMITING [None]
  - WALKING DISABILITY [None]
  - YELLOW SKIN [None]
